FAERS Safety Report 7126880-7 (Version None)
Quarter: 2010Q4

REPORT INFORMATION
  Report Type: 
  Country: None (occurrence: None)
  Receive Date: 20101129
  Receipt Date: 20091223
  Transmission Date: 20110411
  Serious: No
  Sender: FDA-Public Use
  Company Number: US-PFIZER INC-2009314281

PATIENT
  Sex: Male
  Weight: 100.7 kg

DRUGS (5)
  1. VIAGRA [Suspect]
     Indication: ERECTILE DYSFUNCTION
     Dosage: 50 MG, AS NEEDED
     Route: 048
     Dates: start: 20090101
  2. SOTALOL [Concomitant]
     Indication: CARDIAC DISORDER
     Dosage: 120 MG, 2X/DAY
  3. VYTORIN [Concomitant]
     Indication: BLOOD CHOLESTEROL
     Dosage: [EZETIMIBE 10MG]/[SIMVASTATIN 40MG] ONCE DAILY
  4. FOLIC ACID [Concomitant]
     Dosage: 1 MG, 1X/DAY
  5. XANAX [Concomitant]
     Indication: MYOCLONUS
     Dosage: UNK

REACTIONS (1)
  - DRUG INEFFECTIVE [None]
